FAERS Safety Report 20141234 (Version 1)
Quarter: 2021Q4

REPORT INFORMATION
  Report Type: Spontaneous
  Country: US (occurrence: None)
  Receive Date: 20211201
  Receipt Date: 20211201
  Transmission Date: 20220303
  Serious: No
  Sender: FDA-Public Use
  Company Number: None

PATIENT
  Sex: 0

DRUGS (2)
  1. TRAZODONE HCL [Suspect]
     Active Substance: TRAZODONE HYDROCHLORIDE
     Route: 048
  2. TOPIRAMATE [Suspect]
     Active Substance: TOPIRAMATE
     Route: 048

REACTIONS (9)
  - Product dispensing error [None]
  - Sleep disorder [None]
  - Anxiety [None]
  - Psychomotor hyperactivity [None]
  - Ageusia [None]
  - Hypoaesthesia [None]
  - Back pain [None]
  - Alopecia [None]
  - Wrong product administered [None]
